FAERS Safety Report 11590447 (Version 2)
Quarter: 2015Q4

REPORT INFORMATION
  Report Type: Report from Study
  Country: DE (occurrence: DE)
  Receive Date: 20151002
  Receipt Date: 20151029
  Transmission Date: 20160304
  Serious: Yes (Life-Threatening)
  Sender: FDA-Public Use
  Company Number: DE-AMGEN-DEUNI2015102150

PATIENT
  Age: 12 Year
  Sex: Male
  Weight: 24 kg

DRUGS (2)
  1. METHOTREXATE SODIUM. [Suspect]
     Active Substance: METHOTREXATE SODIUM
     Indication: PRODUCT USED FOR UNKNOWN INDICATION
     Dosage: UNK, MG, WEEKLY
     Route: 065
     Dates: start: 20110812, end: 20120905
  2. ETANERCEPT [Suspect]
     Active Substance: ETANERCEPT
     Indication: PRODUCT USED FOR UNKNOWN INDICATION
     Dosage: 25 MG, QWK
     Route: 065
     Dates: start: 20121024

REACTIONS (1)
  - Hepatic fibrosis [Recovered/Resolved]

NARRATIVE: CASE EVENT DATE: 20150326
